FAERS Safety Report 12557489 (Version 4)
Quarter: 2016Q4

REPORT INFORMATION
  Report Type: Spontaneous
  Country: US (occurrence: US)
  Receive Date: 20160714
  Receipt Date: 20161013
  Transmission Date: 20170207
  Serious: No
  Sender: FDA-Public Use
  Company Number: US-PFIZER INC-2016338014

PATIENT
  Age: 60 Year
  Sex: Female

DRUGS (6)
  1. LANTUS [Interacting]
     Active Substance: INSULIN GLARGINE
     Indication: TYPE 1 DIABETES MELLITUS
     Dosage: 58-60 UNITS (AT NIGHT)
  2. LANTUS [Interacting]
     Active Substance: INSULIN GLARGINE
     Dosage: 56 IU, 1X/DAY (AT BEDTIME)
     Dates: start: 2005
  3. HUMALOG [Concomitant]
     Active Substance: INSULIN LISPRO
     Indication: TYPE 1 DIABETES MELLITUS
     Dosage: 20 IU, UNK, (WITH MEALS)
     Dates: start: 1995
  4. LANTUS [Interacting]
     Active Substance: INSULIN GLARGINE
     Dosage: 50-52 UNITS, DAILY (AT NIGHT)
  5. XELJANZ [Suspect]
     Active Substance: TOFACITINIB CITRATE
     Indication: RHEUMATOID ARTHRITIS
     Dosage: 5 MG, 2X/DAY
     Route: 048
     Dates: start: 20160616, end: 20160801
  6. LANTUS [Interacting]
     Active Substance: INSULIN GLARGINE
     Dosage: 40 IU, 1X/DAY (AT NIGHT)

REACTIONS (5)
  - Fall [Recovered/Resolved]
  - Tremor [Recovered/Resolved]
  - Drug interaction [Recovered/Resolved]
  - Blood glucose decreased [Recovered/Resolved]
  - Vomiting [Recovered/Resolved]
